FAERS Safety Report 20947965 (Version 3)
Quarter: 2023Q1

REPORT INFORMATION
  Report Type: Report from Study
  Country: US (occurrence: US)
  Receive Date: 20220611
  Receipt Date: 20230220
  Transmission Date: 20230418
  Serious: Yes (Other)
  Sender: FDA-Public Use
  Company Number: US-TAKEDA-2020TUS052477

PATIENT
  Age: 67 Year
  Sex: Female

DRUGS (2)
  1. HUMAN IMMUNOGLOBULIN G\HYALURONIDASE RECOMBINANT HUMAN [Suspect]
     Active Substance: HUMAN IMMUNOGLOBULIN G\HYALURONIDASE RECOMBINANT HUMAN
     Indication: Primary immunodeficiency syndrome
     Dosage: UNK
     Route: 065
  2. HUMAN IMMUNOGLOBULIN G [Suspect]
     Active Substance: HUMAN IMMUNOGLOBULIN G
     Indication: Primary immunodeficiency syndrome
     Dosage: UNK
     Route: 042

REACTIONS (14)
  - Osteonecrosis [Unknown]
  - Complex regional pain syndrome [Unknown]
  - Nerve injury [Unknown]
  - Meniscus injury [Unknown]
  - Bronchitis [Unknown]
  - Arthropathy [Recovering/Resolving]
  - Nasopharyngitis [Unknown]
  - Infusion site swelling [Unknown]
  - Fatigue [Unknown]
  - COVID-19 [Unknown]
  - Joint injury [Unknown]
  - Arthritis [Unknown]
  - Headache [Unknown]
  - Pain in extremity [Unknown]

NARRATIVE: CASE EVENT DATE: 20220601
